FAERS Safety Report 24290916 (Version 1)
Quarter: 2024Q3

REPORT INFORMATION
  Report Type: Spontaneous
  Country: US (occurrence: US)
  Receive Date: 20240906
  Receipt Date: 20240906
  Transmission Date: 20241017
  Serious: No
  Sender: LEADING PHARMA
  Company Number: US-LEADINGPHARMA-US-2024LEASPO00369

PATIENT

DRUGS (3)
  1. NYSTATIN [Suspect]
     Active Substance: NYSTATIN
     Indication: Pain
     Route: 048
  2. NYSTATIN [Suspect]
     Active Substance: NYSTATIN
     Indication: Thermal burn
  3. NYSTATIN [Suspect]
     Active Substance: NYSTATIN
     Indication: Gingival swelling

REACTIONS (1)
  - Drug ineffective for unapproved indication [Unknown]
